FAERS Safety Report 25825700 (Version 1)
Quarter: 2025Q3

REPORT INFORMATION
  Report Type: Spontaneous
  Country: US (occurrence: None)
  Receive Date: 20250919
  Receipt Date: 20250919
  Transmission Date: 20251020
  Serious: Yes (Disabling)
  Sender: FDA-CTU
  Company Number: None

PATIENT
  Age: 58 Year
  Sex: Male
  Weight: 69.75 kg

DRUGS (10)
  1. CIPROFLOXACIN [Suspect]
     Active Substance: CIPROFLOXACIN
     Dates: start: 20250829, end: 20250830
  2. BUSPAR [Concomitant]
     Active Substance: BUSPIRONE HYDROCHLORIDE
  3. LUNESTA [Concomitant]
     Active Substance: ESZOPICLONE
  4. TIZANIDINE [Concomitant]
     Active Substance: TIZANIDINE
  5. VITAMINS [Concomitant]
     Active Substance: VITAMINS
  6. DIETARY SUPPLEMENT [Concomitant]
     Active Substance: DIETARY SUPPLEMENT
  7. VALERIAN [Concomitant]
     Active Substance: VALERIAN
  8. MELATONIN [Concomitant]
     Active Substance: MELATONIN
  9. BENADRYL [Concomitant]
     Active Substance: DIPHENHYDRAMINE HYDROCHLORIDE
  10. Lion Mane [Concomitant]

REACTIONS (7)
  - Muscle spasms [None]
  - Tremor [None]
  - Insomnia [None]
  - Anxiety [None]
  - Photosensitivity reaction [None]
  - Tendonitis [None]
  - Malaise [None]

NARRATIVE: CASE EVENT DATE: 20250829
